FAERS Safety Report 19839120 (Version 1)
Quarter: 2021Q3

REPORT INFORMATION
  Report Type: Spontaneous
  Country: US (occurrence: US)
  Receive Date: 20210915
  Receipt Date: 20210915
  Transmission Date: 20211014
  Serious: Yes (Disabling)
  Sender: FDA-Public Use
  Company Number: None

PATIENT
  Age: 51 Year
  Sex: Female
  Weight: 49.05 kg

DRUGS (7)
  1. EFFEXOR [Concomitant]
     Active Substance: VENLAFAXINE HYDROCHLORIDE
  2. AMIKACIN. [Suspect]
     Active Substance: AMIKACIN
     Indication: PNEUMONIA
     Dosage: ?          QUANTITY:1 INJECTION(S);?
     Route: 058
     Dates: start: 20201016, end: 20210218
  3. VITAMIN C [Concomitant]
     Active Substance: ASCORBIC ACID
  4. NADOLOL. [Concomitant]
     Active Substance: NADOLOL
  5. VIT D [Concomitant]
     Active Substance: VITAMIN D NOS
  6. AMYTRIPTYLINE [Concomitant]
     Active Substance: AMITRIPTYLINE
  7. LIPITOR [Concomitant]
     Active Substance: ATORVASTATIN CALCIUM

REACTIONS (1)
  - Deafness [None]

NARRATIVE: CASE EVENT DATE: 20210120
